FAERS Safety Report 12934335 (Version 3)
Quarter: 2017Q1

REPORT INFORMATION
  Report Type: Spontaneous
  Country: JP (occurrence: JP)
  Receive Date: 20161111
  Receipt Date: 20170315
  Transmission Date: 20170428
  Serious: Yes (Other)
  Sender: FDA-Public Use
  Company Number: JP-BAUSCH-BL-2016-026589

PATIENT
  Age: 78 Year
  Sex: Male

DRUGS (10)
  1. VISUDYNE [Suspect]
     Active Substance: VERTEPORFIN
     Dosage: FOR THE RIGHT EYE
     Route: 042
     Dates: start: 20150425
  2. LUCENTIS [Suspect]
     Active Substance: RANIBIZUMAB
     Dosage: FIRST INJECTION IN RIGHT EYE INTRAVITREAL.
  3. EYLEA [Concomitant]
     Active Substance: AFLIBERCEPT
     Indication: PRODUCT USED FOR UNKNOWN INDICATION
     Dates: start: 20151030
  4. LUCENTIS [Suspect]
     Active Substance: RANIBIZUMAB
     Indication: AGE-RELATED MACULAR DEGENERATION
     Dosage: SECOND INJECTION IN LEFT EYE INTRAVITREAL
  5. VISUDYNE [Suspect]
     Active Substance: VERTEPORFIN
     Indication: AGE-RELATED MACULAR DEGENERATION
     Route: 042
     Dates: start: 201407
  6. LUCENTIS [Suspect]
     Active Substance: RANIBIZUMAB
     Indication: MACULAR DEGENERATION
     Dosage: FIRST INJECTION IN LEFT EYE INTRAVITREAL
     Dates: start: 201510
  7. EYLEA [Concomitant]
     Active Substance: AFLIBERCEPT
     Dates: start: 20151218
  8. VISUDYNE [Suspect]
     Active Substance: VERTEPORFIN
     Indication: MACULAR DEGENERATION
     Dosage: FOR THE RIGHT EYE
     Route: 042
     Dates: start: 20140809
  9. LUCENTIS [Suspect]
     Active Substance: RANIBIZUMAB
     Dosage: THIRD INJECTION IN LEFT EYE INTRAVITREAL
     Dates: start: 201605
  10. LUCENTIS [Suspect]
     Active Substance: RANIBIZUMAB
     Dosage: FOURTH INJECTION IN LEFT EYE INTRAVITREAL
     Dates: start: 201608

REACTIONS (8)
  - Macular degeneration [Unknown]
  - Disease progression [Unknown]
  - Cystoid macular oedema [Unknown]
  - Detachment of retinal pigment epithelium [Unknown]
  - Age-related macular degeneration [Unknown]
  - Retinal haemorrhage [Unknown]
  - Retinal detachment [Unknown]
  - Retinal oedema [Unknown]

NARRATIVE: CASE EVENT DATE: 201510
